FAERS Safety Report 8603264-3 (Version None)
Quarter: 2012Q3

REPORT INFORMATION
  Report Type: 
  Country: None (occurrence: None)
  Receive Date: 20120817
  Receipt Date: 20120808
  Transmission Date: 20120928
  Serious: Yes (Hospitalization)
  Sender: FDA-Public Use
  Company Number: US-ACTELION-A-NJ2012-65204

PATIENT
  Age: 53 Year
  Sex: Female

DRUGS (1)
  1. EPOPROSTENOL SODIUM [Suspect]
     Indication: PULMONARY ARTERIAL HYPERTENSION
     Dosage: 25 NG/KG, PER MIN
     Route: 041
     Dates: start: 20120215

REACTIONS (6)
  - INFECTION [None]
  - ASCITES [None]
  - URINARY TRACT INFECTION [None]
  - FLUID OVERLOAD [None]
  - ERYTHEMA [None]
  - PARACENTESIS [None]
